FAERS Safety Report 17191940 (Version 2)
Quarter: 2020Q1

REPORT INFORMATION
  Report Type: Spontaneous
  Country: US (occurrence: US)
  Receive Date: 20191223
  Receipt Date: 20200204
  Transmission Date: 20200409
  Serious: No
  Sender: FDA-Public Use
  Company Number: US-BAYER-2019-222364

PATIENT
  Age: 64 Year
  Sex: Male
  Weight: 98.58 kg

DRUGS (4)
  1. XOFIGO [Suspect]
     Active Substance: RADIUM RA-223 DICHLORIDE
     Indication: PROSTATE CANCER
     Dosage: UNK
     Dates: start: 20200103, end: 20200103
  2. XOFIGO [Suspect]
     Active Substance: RADIUM RA-223 DICHLORIDE
     Indication: METASTASES TO BONE
     Dosage: 55 KBQ (1.49 MICROCURIE) PER KG BODY WEIGHT
     Route: 042
     Dates: start: 20191108, end: 20191108
  3. XOFIGO [Suspect]
     Active Substance: RADIUM RA-223 DICHLORIDE
     Indication: PROSTATE CANCER
     Dosage: 55 KBQ (1.49 MICROCURIE) PER KG BODY WEIGHT
     Route: 042
     Dates: start: 20191011, end: 20191011
  4. XOFIGO [Suspect]
     Active Substance: RADIUM RA-223 DICHLORIDE
     Indication: PROSTATE CANCER
     Dosage: UNK
     Dates: start: 20191206, end: 20191206

REACTIONS (2)
  - Foot fracture [Not Recovered/Not Resolved]
  - Pain in extremity [Recovering/Resolving]
